FAERS Safety Report 9469939 (Version 1)
Quarter: 2013Q3

REPORT INFORMATION
  Report Type: Spontaneous
  Country: JP (occurrence: JP)
  Receive Date: 20130822
  Receipt Date: 20130822
  Transmission Date: 20140515
  Serious: Yes (Other)
  Sender: FDA-Public Use
  Company Number: JP-ROXANE LABORATORIES, INC.-2013-RO-01364RO

PATIENT
  Age: 6 Year
  Sex: Female

DRUGS (11)
  1. PREDNISONE [Suspect]
     Indication: B PRECURSOR TYPE ACUTE LEUKAEMIA
  2. MERCAPTOPURINE [Suspect]
     Indication: B PRECURSOR TYPE ACUTE LEUKAEMIA
  3. CYCLOPHOSPHAMIDE TABLETS USP [Suspect]
     Indication: B PRECURSOR TYPE ACUTE LEUKAEMIA
  4. METHOTREXATE [Suspect]
     Indication: B PRECURSOR TYPE ACUTE LEUKAEMIA
  5. VINCRISTINE [Suspect]
     Indication: B PRECURSOR TYPE ACUTE LEUKAEMIA
  6. ADRIAMYCIN [Suspect]
     Indication: B PRECURSOR TYPE ACUTE LEUKAEMIA
  7. L-ASPARAGINASE [Suspect]
     Indication: B PRECURSOR TYPE ACUTE LEUKAEMIA
  8. CYTARABINE [Suspect]
     Indication: B PRECURSOR TYPE ACUTE LEUKAEMIA
  9. CYTARABINE [Suspect]
     Route: 037
  10. METHOTREXATE [Suspect]
     Indication: B PRECURSOR TYPE ACUTE LEUKAEMIA
     Route: 037
  11. HYDROCORTISONE [Suspect]
     Indication: B PRECURSOR TYPE ACUTE LEUKAEMIA
     Route: 037

REACTIONS (3)
  - Temporal lobe epilepsy [Recovered/Resolved]
  - Hippocampal sclerosis [Unknown]
  - Grand mal convulsion [Recovered/Resolved]
